FAERS Safety Report 4607818-0 (Version None)
Quarter: 2005Q1

REPORT INFORMATION
  Report Type: 
  Country: None (occurrence: None)
  Receive Date: 20050314
  Receipt Date: 20050304
  Transmission Date: 20050727
  Serious: Yes (Other)
  Sender: FDA-Public Use
  Company Number: US-GLAXOSMITHKLINE-A0548286A

PATIENT
  Age: 60 Year
  Sex: Female

DRUGS (8)
  1. BEANO LIQUID DROPS [Suspect]
     Indication: FLATULENCE
     Dosage: 3DROP THREE TIMES PER DAY
     Route: 048
     Dates: start: 20050302
  2. LANTUS [Concomitant]
     Indication: DIABETES MELLITUS
     Route: 058
  3. ZOCOR [Concomitant]
  4. METOPROLOL [Concomitant]
  5. ACTOS [Concomitant]
     Indication: DIABETES MELLITUS
  6. PREVACID [Concomitant]
  7. LEXAPRO [Concomitant]
  8. INSULIN NOVOLIN [Concomitant]
     Indication: DIABETES MELLITUS
     Route: 058

REACTIONS (2)
  - DIZZINESS [None]
  - HYPOGLYCAEMIA [None]
